FAERS Safety Report 13696059 (Version 2)
Quarter: 2017Q3

REPORT INFORMATION
  Report Type: Spontaneous
  Country: US (occurrence: US)
  Receive Date: 20170628
  Receipt Date: 20170920
  Transmission Date: 20171127
  Serious: No
  Sender: FDA-Public Use
  Company Number: US-LUPIN PHARMACEUTICALS INC.-2017-03140

PATIENT
  Age: 32 Year
  Sex: Female
  Weight: 54.42 kg

DRUGS (2)
  1. MIBELAS 24 FE [Suspect]
     Active Substance: ETHINYL ESTRADIOL\NORETHINDRONE ACETATE
     Indication: ORAL CONTRACEPTION
     Dosage: 1MG/20MCG, QD
     Route: 048
     Dates: start: 201703
  2. COLESTIPOL [Concomitant]
     Active Substance: COLESTIPOL
     Indication: PRODUCT USED FOR UNKNOWN INDICATION
     Dosage: UNK UNK, QD
     Route: 048

REACTIONS (1)
  - Menstruation delayed [Not Recovered/Not Resolved]

NARRATIVE: CASE EVENT DATE: 201704
